FAERS Safety Report 9519842 (Version 2)
Quarter: 2013Q3

REPORT INFORMATION
  Report Type: Spontaneous
  Country: ES (occurrence: ES)
  Receive Date: 20130912
  Receipt Date: 20130917
  Transmission Date: 20140515
  Serious: Yes (Other)
  Sender: FDA-Public Use
  Company Number: ES-TEVA-429846ISR

PATIENT
  Sex: Male

DRUGS (5)
  1. SIMVASTATINA TEVA-RIMAFAR 40 MG COMPRIMIDOS RECUBIERTOS [Suspect]
     Route: 048
     Dates: start: 20130725
  2. METFORMINA SANDOZ 850 MG COMPRIMIDOS RECUBIERTOS [Suspect]
     Route: 048
     Dates: start: 20130725
  3. COROPRES 25 MG COMPRIMIDOS [Suspect]
     Route: 048
     Dates: start: 20130725
  4. ACOVIL 5 MG COMPRIMIDOS [Suspect]
     Route: 048
     Dates: start: 20130725
  5. INALADUO [Suspect]
     Indication: EMPHYSEMA
     Dates: start: 2010, end: 20130729

REACTIONS (2)
  - Anaphylactic shock [Recovered/Resolved]
  - Angioedema [Recovered/Resolved]
